FAERS Safety Report 21648237 (Version 4)
Quarter: 2022Q4

REPORT INFORMATION
  Report Type: Report from Study
  Country: US (occurrence: US)
  Receive Date: 20221128
  Receipt Date: 20221224
  Transmission Date: 20230113
  Serious: No
  Sender: FDA-Public Use
  Company Number: US-002147023-NVSC2022US265647

PATIENT
  Age: 50 Year
  Sex: Female

DRUGS (1)
  1. ENTRESTO [Suspect]
     Active Substance: SACUBITRIL\VALSARTAN
     Indication: Cardiac failure
     Dosage: UNK UNK, BID
     Route: 048
     Dates: start: 202209

REACTIONS (9)
  - Road traffic accident [Unknown]
  - Concussion [Unknown]
  - Memory impairment [Unknown]
  - Fatigue [Unknown]
  - Arthritis [Recovering/Resolving]
  - Feeling abnormal [Unknown]
  - Arthralgia [Recovering/Resolving]
  - Inappropriate schedule of product administration [Recovered/Resolved]
  - Product dose omission issue [Unknown]

NARRATIVE: CASE EVENT DATE: 20220901
